FAERS Safety Report 13987967 (Version 3)
Quarter: 2018Q1

REPORT INFORMATION
  Report Type: Spontaneous
  Country: US (occurrence: US)
  Receive Date: 20170919
  Receipt Date: 20180110
  Transmission Date: 20180508
  Serious: No
  Sender: FDA-Public Use
  Company Number: US-PFIZER INC-2017404513

PATIENT
  Age: 48 Year
  Sex: Female

DRUGS (1)
  1. PREMARIN [Suspect]
     Active Substance: ESTROGENS, CONJUGATED
     Indication: HYSTERECTOMY
     Dosage: 0.9 MG, 1X/DAY
     Dates: start: 1996

REACTIONS (3)
  - Pyrexia [Unknown]
  - Malaise [Unknown]
  - Influenza [Unknown]
